FAERS Safety Report 20779114 (Version 4)
Quarter: 2022Q4

REPORT INFORMATION
  Report Type: Spontaneous
  Country: GB (occurrence: GB)
  Receive Date: 20220503
  Receipt Date: 20221026
  Transmission Date: 20230113
  Serious: Yes (Death, Hospitalization, Other)
  Sender: FDA-Public Use
  Company Number: GB-MHRA-MED-202204271053270160-POCVU

PATIENT
  Age: 67 Year
  Sex: Male

DRUGS (8)
  1. AXITINIB [Suspect]
     Active Substance: AXITINIB
     Indication: Metastatic renal cell carcinoma
     Dosage: 5MG INCREASED TO 7MG FROM THE 1ST TO THE 2ND INFUSION; ;
     Dates: start: 20210209
  2. AXITINIB [Suspect]
     Active Substance: AXITINIB
     Dosage: 5MG INCREASED TO 7MG FROM THE 1ST TO THE 2ND INFUSION
     Dates: start: 20210308
  3. AXITINIB [Suspect]
     Active Substance: AXITINIB
     Dosage: 3 MG, 2X/DAY
     Route: 048
     Dates: start: 20210209, end: 20210308
  4. AVELUMAB [Suspect]
     Active Substance: AVELUMAB
     Indication: Metastatic renal cell carcinoma
     Dosage: 5 MG
     Dates: start: 20210209
  5. AVELUMAB [Suspect]
     Active Substance: AVELUMAB
     Dosage: 7 MG
     Dates: start: 20210308
  6. AVELUMAB [Suspect]
     Active Substance: AVELUMAB
     Dosage: 800 MG
     Route: 042
     Dates: start: 20210209, end: 20210308
  7. CETIRIZINE [Concomitant]
     Active Substance: CETIRIZINE HYDROCHLORIDE
     Dosage: UNK
  8. ACETAMINOPHEN [Concomitant]
     Active Substance: ACETAMINOPHEN
     Dosage: UNK

REACTIONS (12)
  - Death of relative [Fatal]
  - Haemorrhage [Fatal]
  - Renal haemorrhage [Fatal]
  - Neoplasm progression [Fatal]
  - Medication error [Fatal]
  - Respiratory arrest [Unknown]
  - Rib fracture [Unknown]
  - Syncope [Unknown]
  - Loss of consciousness [Recovered/Resolved]
  - Hypersensitivity [Recovered/Resolved]
  - Mouth injury [Unknown]
  - Malaise [Unknown]

NARRATIVE: CASE EVENT DATE: 20210209
